FAERS Safety Report 7573330-2 (Version None)
Quarter: 2011Q2

REPORT INFORMATION
  Report Type: 
  Country: None (occurrence: None)
  Receive Date: 20110627
  Receipt Date: 20110615
  Transmission Date: 20111010
  Serious: Yes (Hospitalization, Other)
  Sender: FDA-Public Use
  Company Number: PHFR2010IE05757

PATIENT
  Sex: Female

DRUGS (4)
  1. INDERAL [Concomitant]
     Dosage: 10 MG, BID
     Route: 048
  2. DIAZEPAM [Concomitant]
     Dosage: 5 M, BID
     Route: 048
  3. CLOZAPINE [Suspect]
     Indication: SCHIZOPHRENIA
     Dosage: 250 MG, BID
     Route: 048
     Dates: start: 20001204
  4. SULPIRIDE [Concomitant]
     Indication: PSYCHOTIC DISORDER
     Dosage: 100 MG, TID
     Route: 048

REACTIONS (2)
  - OEDEMA PERIPHERAL [None]
  - LYMPHOEDEMA [None]
